FAERS Safety Report 9523023 (Version 3)
Quarter: 2013Q4

REPORT INFORMATION
  Report Type: Spontaneous
  Country: BE (occurrence: None)
  Receive Date: 20130823
  Receipt Date: 20131118
  Transmission Date: 20140711
  Serious: Yes (Other)
  Sender: FDA-Public Use
  Company Number: 2013037481

PATIENT
  Age: 33 Year
  Sex: Female

DRUGS (10)
  1. HIZENTRA [Suspect]
     Indication: IMMUNODEFICIENCY
     Route: 058
     Dates: start: 20130805
  2. HIZENTRA [Suspect]
     Indication: INFECTION
     Route: 058
     Dates: start: 20130805
  3. CYMBALTA (DULOXETINE HYDROCHLORIDE) [Concomitant]
  4. ELTHYRONE (LEVOTHYROXINE SODIUM) [Concomitant]
  5. OMEPRAZOL (OMEPRAZOLE) [Concomitant]
  6. PLAQUENIL /00072602/ (HYDROXYCHLOROQUINE PHOSPHATE) [Concomitant]
  7. TOPAMAX (TOPIRAMATE) [Concomitant]
  8. STAURODORM /00246101/ (FLURAZEPAM) [Concomitant]
  9. TRAZODONE [Concomitant]
  10. MONTELUKAST [Concomitant]

REACTIONS (10)
  - Concussion [None]
  - Fall [None]
  - Loss of consciousness [None]
  - Head injury [None]
  - Headache [None]
  - Back pain [None]
  - Nausea [None]
  - Photophobia [None]
  - Chills [None]
  - Gait disturbance [None]
